FAERS Safety Report 7717425-9 (Version None)
Quarter: 2011Q3

REPORT INFORMATION
  Report Type: 
  Country: None (occurrence: None)
  Receive Date: 20110830
  Receipt Date: 20110824
  Transmission Date: 20111222
  Serious: Yes (Other)
  Sender: FDA-Public Use
  Company Number: NL-ASTELLAS-2011EU005666

PATIENT
  Sex: Male
  Weight: 87 kg

DRUGS (3)
  1. IRBESARTAN [Concomitant]
     Dosage: 150 MG, UID/QD
     Route: 048
     Dates: start: 20110525
  2. TAMSULOSIN HCL [Concomitant]
     Indication: URINARY TRACT DISORDER
     Dosage: 0.4 MG, UID/QD
     Route: 048
     Dates: start: 20110525
  3. VESICARE [Suspect]
     Indication: URINARY TRACT DISORDER
     Dosage: 5 MG, UID/QD
     Route: 048
     Dates: start: 20110525

REACTIONS (1)
  - RETINAL DETACHMENT [None]
